FAERS Safety Report 16313285 (Version 2)
Quarter: 2019Q2

REPORT INFORMATION
  Report Type: Spontaneous
  Country: VN (occurrence: VN)
  Receive Date: 20190515
  Receipt Date: 20190527
  Transmission Date: 20190711
  Serious: Yes (Death, Hospitalization)
  Sender: FDA-Public Use
  Company Number: VN-ROCHE-2317987

PATIENT
  Age: 60 Year
  Weight: 43 kg

DRUGS (1)
  1. ACTILYSE [Suspect]
     Active Substance: ALTEPLASE
     Indication: CEREBROVASCULAR ACCIDENT
     Route: 065

REACTIONS (5)
  - Aortic dissection [Fatal]
  - Stroke in evolution [Fatal]
  - Paralysis [Fatal]
  - Aortic aneurysm [Fatal]
  - Off label use [Unknown]
